FAERS Safety Report 6152268-1 (Version None)
Quarter: 2009Q2

REPORT INFORMATION
  Report Type: 
  Country: None (occurrence: None)
  Receive Date: 20090410
  Receipt Date: 20090401
  Transmission Date: 20091009
  Serious: Yes (Life-Threatening, Hospitalization, Other)
  Sender: FDA-Public Use
  Company Number: FR-ABBOTT-09P-056-0558431-00

PATIENT
  Sex: Female
  Weight: 71 kg

DRUGS (9)
  1. HUMIRA [Suspect]
     Indication: CROHN'S DISEASE
     Route: 058
     Dates: start: 20081120, end: 20090101
  2. HUMIRA [Suspect]
     Dates: start: 20071010, end: 20071201
  3. METHOTREXATE [Suspect]
     Indication: CROHN'S DISEASE
     Dates: start: 20081120
  4. QUESTRAN [Concomitant]
     Indication: DRUG USE FOR UNKNOWN INDICATION
  5. CIPROFLOXACIN HCL [Concomitant]
     Indication: DRUG USE FOR UNKNOWN INDICATION
  6. FLAGYL [Concomitant]
     Indication: DRUG USE FOR UNKNOWN INDICATION
  7. XANAX [Concomitant]
     Indication: DRUG USE FOR UNKNOWN INDICATION
  8. SPASFON [Concomitant]
     Indication: DRUG USE FOR UNKNOWN INDICATION
  9. ACUPAN [Concomitant]
     Indication: DRUG USE FOR UNKNOWN INDICATION

REACTIONS (14)
  - ABSCESS [None]
  - ANAL FISTULA [None]
  - AORTIC THROMBOSIS [None]
  - ARTERIAL THROMBOSIS LIMB [None]
  - CARDIOLIPIN ANTIBODY POSITIVE [None]
  - CROHN'S DISEASE [None]
  - DIARRHOEA HAEMORRHAGIC [None]
  - ESCHERICHIA SEPSIS [None]
  - IMMUNOGLOBULINS DECREASED [None]
  - INFLAMMATION [None]
  - LEUKOCYTOSIS [None]
  - OCULAR HYPERAEMIA [None]
  - PERIPHERAL ISCHAEMIA [None]
  - THROMBOCYTHAEMIA [None]
